FAERS Safety Report 7957021-1 (Version None)
Quarter: 2011Q4

REPORT INFORMATION
  Report Type: 
  Country: None (occurrence: None)
  Receive Date: 20111205
  Receipt Date: 20111205
  Transmission Date: 20120403
  Serious: Yes (Disabling)
  Sender: FDA-Public Use
  Company Number: None

PATIENT
  Age: 46 Year
  Sex: Female
  Weight: 80.285 kg

DRUGS (2)
  1. LIPITOR [Concomitant]
     Dosage: 20MG
     Route: 048
     Dates: start: 20111130, end: 20111202
  2. ZOCOR [Suspect]
     Indication: BLOOD CHOLESTEROL INCREASED
     Dosage: 40MG
     Route: 048
     Dates: start: 20090916, end: 20111130

REACTIONS (3)
  - HYPERTENSION [None]
  - PAIN IN EXTREMITY [None]
  - ARTHRALGIA [None]
